FAERS Safety Report 8901746 (Version 2)
Quarter: 2013Q2

REPORT INFORMATION
  Report Type: Spontaneous
  Country: US (occurrence: None)
  Receive Date: 20121105
  Receipt Date: 20130501
  Transmission Date: 20140414
  Serious: Yes (Other)
  Sender: FDA-Public Use
  Company Number: 2012SA077595

PATIENT
  Age: 52 Year
  Sex: Female

DRUGS (1)
  1. ICY HOT MEDICATED NO MESS APPLICATOR [Suspect]
     Indication: MUSCULOSKELETAL STIFFNESS
     Route: 061
     Dates: start: 20121016

REACTIONS (3)
  - Application site burn [None]
  - Application site pain [None]
  - Application site fissure [None]
